FAERS Safety Report 5914871-0 (Version None)
Quarter: 2008Q4

REPORT INFORMATION
  Report Type: 
  Country: None (occurrence: None)
  Receive Date: 20081010
  Receipt Date: 20081003
  Transmission Date: 20090506
  Serious: Yes (Other)
  Sender: FDA-Public Use
  Company Number: PHHY2008FR21310

PATIENT
  Sex: Female
  Weight: 59 kg

DRUGS (4)
  1. ACLASTA [Suspect]
     Dosage: 5 MG
     Route: 042
     Dates: start: 20080820
  2. LEVOTHYROX [Concomitant]
     Dosage: 100 MCG PER DAY
  3. OROCAL D3 [Concomitant]
  4. DOLIPRANE [Concomitant]

REACTIONS (5)
  - FATIGUE [None]
  - HYPOTENSION [None]
  - NAUSEA [None]
  - PYREXIA [None]
  - VOMITING [None]
